FAERS Safety Report 8209616-8 (Version None)
Quarter: 2012Q1

REPORT INFORMATION
  Report Type: 
  Country: None (occurrence: None)
  Receive Date: 20120314
  Receipt Date: 20120309
  Transmission Date: 20120608
  Serious: Yes (Death, Hospitalization)
  Sender: FDA-Public Use
  Company Number: US-ELI_LILLY_AND_COMPANY-US201203002820

PATIENT
  Age: 65 Year
  Sex: Female

DRUGS (1)
  1. ALIMTA [Suspect]
     Indication: NON-SMALL CELL LUNG CANCER
     Dosage: OVER 1 YEAR

REACTIONS (5)
  - DYSPHAGIA [None]
  - PANCYTOPENIA [None]
  - DEATH [None]
  - THROMBOCYTOPENIA [None]
  - MUCOSAL INFLAMMATION [None]
